FAERS Safety Report 15015290 (Version 1)
Quarter: 2018Q2

REPORT INFORMATION
  Report Type: Spontaneous
  Country: US (occurrence: US)
  Receive Date: 20180615
  Receipt Date: 20180615
  Transmission Date: 20180711
  Serious: No
  Sender: FDA-Public Use
  Company Number: US-TEVA-2018-US-906445

PATIENT
  Age: 3 Year
  Sex: Female

DRUGS (1)
  1. CEFALEXIN [Suspect]
     Active Substance: CEPHALEXIN
     Indication: RASH
     Dosage: DOSE STRENGTH: 250MG PER 5ML
     Route: 048
     Dates: start: 20180604, end: 20180604

REACTIONS (2)
  - Urticaria [Unknown]
  - Product use in unapproved indication [Unknown]
